FAERS Safety Report 20350559 (Version 1)
Quarter: 2022Q1

REPORT INFORMATION
  Report Type: Spontaneous
  Country: US (occurrence: None)
  Receive Date: 20220117
  Receipt Date: 20220117
  Transmission Date: 20220423
  Serious: Yes (Congenital Anomaly)
  Sender: FDA-Public Use
  Company Number: None

PATIENT
  Age: 37 Year
  Sex: Female
  Weight: 100.35 kg

DRUGS (3)
  1. PEPCID [Suspect]
     Active Substance: FAMOTIDINE
     Indication: Dyspepsia
     Dosage: OTHER QUANTITY : 1 TABLET(S);?
     Route: 048
     Dates: start: 20220114
  2. PEPCID AC [Suspect]
     Active Substance: FAMOTIDINE
  3. VITAMINS [Suspect]
     Active Substance: VITAMINS

REACTIONS (2)
  - Foetal heart rate abnormal [None]
  - Exposure during pregnancy [None]

NARRATIVE: CASE EVENT DATE: 20220117
